FAERS Safety Report 20047079 (Version 2)
Quarter: 2021Q4

REPORT INFORMATION
  Report Type: Spontaneous
  Country: JP (occurrence: JP)
  Receive Date: 20211109
  Receipt Date: 20211203
  Transmission Date: 20220303
  Serious: Yes (Death, Other)
  Sender: FDA-Public Use
  Company Number: JP-ASTELLAS-2021JP021563

PATIENT
  Age: 85 Year
  Sex: Male

DRUGS (4)
  1. XTANDI [Suspect]
     Active Substance: ENZALUTAMIDE
     Indication: Hormone-refractory prostate cancer
     Dosage: UNK, UNK, UNKNOWN FREQ.
     Route: 048
  2. TRAMADOL HYDROCHLORIDE [Concomitant]
     Active Substance: TRAMADOL HYDROCHLORIDE
     Indication: Product used for unknown indication
     Dosage: UNK, UNK, UNKNOWN FREQ.
     Route: 048
  3. MAGNESIUM OXIDE [Concomitant]
     Active Substance: MAGNESIUM OXIDE
     Indication: Product used for unknown indication
     Dosage: UNK, UNK, UNKNOWN FREQ.
     Route: 048
  4. CALONAL [Concomitant]
     Active Substance: ACETAMINOPHEN
     Indication: Product used for unknown indication
     Dosage: UNK, UNK, UNKNOWN FREQ.
     Route: 048

REACTIONS (1)
  - Prostate cancer [Fatal]

NARRATIVE: CASE EVENT DATE: 20210127
